FAERS Safety Report 26188944 (Version 1)
Quarter: 2025Q4

REPORT INFORMATION
  Report Type: Spontaneous
  Country: US (occurrence: US)
  Receive Date: 20251223
  Receipt Date: 20251223
  Transmission Date: 20260118
  Serious: Yes (Hospitalization, Other)
  Sender: STRIDES
  Company Number: US-STRIDES ARCOLAB LIMITED-2025SP015978

PATIENT
  Age: 52 Year
  Sex: Female

DRUGS (3)
  1. LISINOPRIL [Suspect]
     Active Substance: LISINOPRIL
     Indication: Hyperaldosteronism
     Dosage: 25 MILLIGRAM,TRIPLED HER DOSES
     Route: 065
  2. POTASSIUM CHLORIDE [Suspect]
     Active Substance: POTASSIUM CHLORIDE
     Indication: Hyperaldosteronism
     Dosage: 20 MILLIGRAM, TRIPLED HER DOSES
     Route: 065
  3. SPIRONOLACTONE [Suspect]
     Active Substance: SPIRONOLACTONE
     Indication: Hyperaldosteronism
     Dosage: 25 MILLIGRAM, TRIPLED HER DOSES
     Route: 065

REACTIONS (4)
  - Renal tubular acidosis [Recovered/Resolved]
  - Intentional product misuse [Unknown]
  - Hyperkalaemia [Recovered/Resolved]
  - Off label use [Unknown]
